FAERS Safety Report 15228077 (Version 3)
Quarter: 2019Q1

REPORT INFORMATION
  Report Type: Report from Study
  Country: None (occurrence: FR)
  Receive Date: 20180801
  Receipt Date: 20190115
  Transmission Date: 20190417
  Serious: Yes (Hospitalization)
  Sender: FDA-Public Use
  Company Number: FR-ABBVIE-18P-056-2437452-00

PATIENT
  Age: 59 Year
  Sex: Female

DRUGS (3)
  1. OBINUTUZUMAB. [Concomitant]
     Active Substance: OBINUTUZUMAB
     Indication: MANTLE CELL LYMPHOMA
     Dosage: D1 (100MG), D2 (900MG), D8 (1000MG)
     Route: 042
     Dates: start: 20170330, end: 20180709
  2. IBRUTINIB [Suspect]
     Active Substance: IBRUTINIB
     Indication: MANTLE CELL LYMPHOMA
     Dosage: C1 AT D2 TO C16 AT D28
     Route: 048
     Dates: start: 20170330, end: 20180709
  3. VENETOCLAX. [Suspect]
     Active Substance: VENETOCLAX
     Indication: MANTLE CELL LYMPHOMA
     Dosage: C1BIS/ D1-D7:20MG; D8-D14 50MG;D15-D21:100MG; D22-D28:200MG;C2-D1-D7:400MG;D8-D28:600MG
     Route: 048
     Dates: start: 20170427, end: 20180719

REACTIONS (2)
  - Pneumonia [Recovered/Resolved]
  - Hypoxia [Recovered/Resolved]

NARRATIVE: CASE EVENT DATE: 20180719
